FAERS Safety Report 14319636 (Version 1)
Quarter: 2017Q4

REPORT INFORMATION
  Report Type: Spontaneous
  Country: BR (occurrence: BR)
  Receive Date: 20171222
  Receipt Date: 20171222
  Transmission Date: 20180321
  Serious: Yes (Other)
  Sender: FDA-Public Use
  Company Number: BR-SA-2017SA251293

PATIENT
  Age: 39 Year
  Sex: Female
  Weight: 77 kg

DRUGS (8)
  1. CLEXANE SAFETY LOCK [Suspect]
     Active Substance: ENOXAPARIN SODIUM
     Indication: HYPERCOAGULATION
     Route: 058
  2. VITAMINS NOS [Suspect]
     Active Substance: VITAMINS
     Route: 065
  3. MINERALS NOS/FOLIC ACID/VITAMINS NOS/IRON [Suspect]
     Active Substance: FOLIC ACID\IRON\MINERALS\VITAMINS
     Route: 065
  4. VI-FER [Suspect]
     Active Substance: IRON\VITAMINS
     Route: 065
  5. UTROGESTAN [Suspect]
     Active Substance: PROGESTERONE
     Route: 065
  6. AAS INFANTIL [Suspect]
     Active Substance: ASPIRIN
     Route: 065
  7. OSCAL D [Suspect]
     Active Substance: CALCIUM CARBONATE\CHOLECALCIFEROL
     Route: 065
  8. OMEGA 3 [Suspect]
     Active Substance: OMEGA-3 FATTY ACIDS
     Route: 065

REACTIONS (2)
  - Placental disorder [Unknown]
  - Exposure during pregnancy [Unknown]
